FAERS Safety Report 18665519 (Version 1)
Quarter: 2020Q4

REPORT INFORMATION
  Report Type: Spontaneous
  Country: IE (occurrence: IE)
  Receive Date: 20201226
  Receipt Date: 20201226
  Transmission Date: 20210114
  Serious: Yes (Other)
  Sender: FDA-Public Use
  Company Number: IE-AMGEN-IRLSP2020210706

PATIENT
  Age: 23 Year
  Sex: Male

DRUGS (4)
  1. AIMOVIG [Suspect]
     Active Substance: ERENUMAB-AOOE
     Indication: HEADACHE
     Dosage: 140 MG, Q4W(7 MONTH)
     Route: 058
  2. METHENAMINE MANDELATE;METHIONINE [Concomitant]
     Dosage: 360 MG(MAXIMUM OF 360MG AND AS LOW AS 160MG REDUCING DOSE)
     Route: 030
  3. EPILIM [Concomitant]
     Active Substance: VALPROATE SODIUM
     Indication: PRODUCT USED FOR UNKNOWN INDICATION
     Dosage: UNK(VALPROATE POSSIBLY USED OVER THIS PERIOD. PATIENT NOT SURE WHEN HE DISCONTINUED IT)
     Route: 065
  4. METHENAMINE MANDELATE;METHIONINE [Concomitant]
     Indication: HEADACHE
     Dosage: 160 MG(MAXIMUM OF 360MG AND AS LOW AS 160MG REDUCING DOSE)
     Route: 030

REACTIONS (2)
  - Nightmare [Recovered/Resolved]
  - Constipation [Recovered/Resolved]
